FAERS Safety Report 17194379 (Version 1)
Quarter: 2019Q4

REPORT INFORMATION
  Report Type: Spontaneous
  Country: AU (occurrence: AU)
  Receive Date: 20191224
  Receipt Date: 20191224
  Transmission Date: 20200122
  Serious: Yes (Hospitalization, Other)
  Sender: FDA-Public Use
  Company Number: AU-AMGEN-AUSSP2019210803

PATIENT
  Age: 65 Year
  Sex: Male

DRUGS (8)
  1. GOSERELIN [Concomitant]
     Active Substance: GOSERELIN
  2. BICALUTAMIDE. [Concomitant]
     Active Substance: BICALUTAMIDE
  3. CALCIUM CARBONATE. [Concomitant]
     Active Substance: CALCIUM CARBONATE
     Dosage: 3600 MILLIGRAM, QD
  4. XGEVA [Suspect]
     Active Substance: DENOSUMAB
     Indication: METASTASES TO BONE
     Dosage: 120 MILLIGRAM
     Route: 058
  5. CHOLECALCIFEROL [Concomitant]
     Active Substance: CHOLECALCIFEROL
     Dosage: 1000 IU, QD
  6. CALCIUM CARBONATE. [Concomitant]
     Active Substance: CALCIUM CARBONATE
     Indication: HYPOCALCAEMIA
     Dosage: 600 MILLIGRAM, QD
  7. CHOLECALCIFEROL [Concomitant]
     Active Substance: CHOLECALCIFEROL
     Dosage: 1000 IU, BID
  8. DEGARELIX [Concomitant]
     Active Substance: DEGARELIX

REACTIONS (7)
  - Blood parathyroid hormone increased [Unknown]
  - Blood phosphorus decreased [Unknown]
  - Hypocalcaemia [Unknown]
  - Blood alkaline phosphatase increased [Unknown]
  - Metastases to liver [Unknown]
  - Metastases to bone [Unknown]
  - Pancytopenia [Unknown]
